FAERS Safety Report 4614809-2 (Version None)
Quarter: 2005Q1

REPORT INFORMATION
  Report Type: 
  Country: None (occurrence: None)
  Receive Date: 20050322
  Receipt Date: 20050310
  Transmission Date: 20050727
  Serious: Yes (Other)
  Sender: FDA-Public Use
  Company Number: NL-AMGEN-UK120467

PATIENT
  Sex: Male

DRUGS (2)
  1. ARANESP [Suspect]
     Indication: ANAEMIA OF MALIGNANT DISEASE
     Route: 065
     Dates: start: 20050201
  2. THALIDOMIDE [Concomitant]
     Route: 065
     Dates: start: 20040901

REACTIONS (4)
  - NEPHROTIC SYNDROME [None]
  - OEDEMA PERIPHERAL [None]
  - PARANEOPLASTIC SYNDROME [None]
  - WEIGHT INCREASED [None]
